FAERS Safety Report 12680284 (Version 1)
Quarter: 2016Q3

REPORT INFORMATION
  Report Type: Spontaneous
  Country: GB (occurrence: GB)
  Receive Date: 20160824
  Receipt Date: 20160824
  Transmission Date: 20161109
  Serious: Yes (Disabling)
  Sender: FDA-Public Use
  Company Number: GB-TEVA-685518ACC

PATIENT
  Age: 31 Year
  Sex: Male
  Weight: 70 kg

DRUGS (7)
  1. TOPIRAMATE. [Suspect]
     Active Substance: TOPIRAMATE
     Dates: start: 20160802
  2. LEVOTHYROXINE. [Concomitant]
     Active Substance: LEVOTHYROXINE
     Dosage: 1 DOSAGE FORMS DAILY;
     Dates: start: 20160718
  3. ASPIRIN. [Concomitant]
     Active Substance: ASPIRIN
     Dosage: IMMEDIATELY AT THE START OF M...
     Dates: start: 20160705, end: 20160802
  4. PIZOTIFEN [Concomitant]
     Active Substance: PIZOTYLINE
     Dosage: USE AS DIRECTED
     Dates: start: 20160802
  5. PROCHLORPERAZINE. [Concomitant]
     Active Substance: PROCHLORPERAZINE
     Indication: NAUSEA
     Dosage: 1-2 UP TO 2 TIMES A DAY.
     Dates: start: 20160802
  6. AMITRIPTYLINE HYDROCHLORIDE. [Concomitant]
     Active Substance: AMITRIPTYLINE HYDROCHLORIDE
     Dosage: 1 DOSAGE FORMS DAILY; AT NIGHT
     Dates: start: 20160524, end: 20160628
  7. RIZATRIPTAN. [Concomitant]
     Active Substance: RIZATRIPTAN
     Dosage: CAN TAKE ANOTHER DOSE A...
     Dates: start: 20160523, end: 20160622

REACTIONS (3)
  - Balance disorder [Unknown]
  - Nausea [Unknown]
  - Dizziness [Unknown]

NARRATIVE: CASE EVENT DATE: 20160802
